FAERS Safety Report 4586021-7 (Version None)
Quarter: 2005Q1

REPORT INFORMATION
  Report Type: 
  Country: None (occurrence: None)
  Receive Date: 20050125
  Receipt Date: 20040915
  Transmission Date: 20050727
  Serious: No
  Sender: FDA-Public Use
  Company Number: USA040568405

PATIENT
  Age: 72 Year
  Sex: Female
  Weight: 48 kg

DRUGS (13)
  1. FORTEO [Suspect]
     Indication: OSTEOPOROSIS
     Dosage: 20 UG/1 DAY
     Dates: start: 20040518
  2. ACETAMINOPHEN W/ PROPOXYPHENE HCL [Concomitant]
  3. ESTROGENS CONJUGATED [Concomitant]
  4. AMBIEN [Concomitant]
  5. DOMPERIDONE [Concomitant]
  6. COMPAZINE (PROCHLORPERAXINE EDISYLATE) [Concomitant]
  7. TRAMADOL HCL [Concomitant]
  8. TEGASEROD [Concomitant]
  9. ASPIRIN [Concomitant]
  10. TYLENOL (CAPLET) [Concomitant]
  11. EXCEDRIN (MIGRAINE) [Concomitant]
  12. MIRALAX [Concomitant]
  13. CELEBREX [Concomitant]

REACTIONS (11)
  - ARTHRALGIA [None]
  - ASTHENIA [None]
  - CATARACT [None]
  - DIZZINESS [None]
  - EYE PAIN [None]
  - INSOMNIA [None]
  - ORTHOSTATIC HYPOTENSION [None]
  - PALPITATIONS [None]
  - SUPRAVENTRICULAR TACHYCARDIA [None]
  - VISUAL ACUITY REDUCED [None]
  - VISUAL DISTURBANCE [None]
